FAERS Safety Report 4338232-3 (Version None)
Quarter: 2004Q2

REPORT INFORMATION
  Report Type: 
  Country: None (occurrence: None)
  Receive Date: 20040409
  Receipt Date: 20040329
  Transmission Date: 20050107
  Serious: Yes (Hospitalization)
  Sender: FDA-Public Use
  Company Number: 04P-013-0255064-00

PATIENT

DRUGS (3)
  1. TRICOR [Suspect]
     Indication: HYPERCHOLESTEROLAEMIA
     Dosage: 267 MG, 1 IN 1 D, PER ORAL
     Route: 048
     Dates: start: 20030425
  2. CHLORTALIDONE [Concomitant]
  3. BISOPROLOL [Concomitant]

REACTIONS (1)
  - RENAL FAILURE ACUTE [None]
